FAERS Safety Report 5752354-1 (Version None)
Quarter: 2008Q2

REPORT INFORMATION
  Report Type: 
  Country: None (occurrence: None)
  Receive Date: 20080529
  Receipt Date: 20080519
  Transmission Date: 20081010
  Serious: Yes (Death, Hospitalization)
  Sender: FDA-Public Use
  Company Number: FR-NOVOPROD-275580

PATIENT
  Age: 73 Year
  Sex: Male

DRUGS (8)
  1. ACTRAPID [Suspect]
     Indication: DIABETES MELLITUS
  2. MIXTARD HUMAN 70/30 [Suspect]
     Indication: DIABETES MELLITUS
  3. CARDENSIEL [Concomitant]
     Dosage: 1.25 MG, QD
  4. ZYLORIC                            /00003301/ [Concomitant]
  5. MOPRAL                             /00661201/ [Concomitant]
     Dosage: 20 MG, QD
  6. PREVISCAN                          /00261401/ [Concomitant]
     Dosage: 20 MG, QD
  7. LASILIX                            /00032601/ [Concomitant]
     Dosage: 500 MG, QD
  8. OROCAL                             /00108001/ [Concomitant]
     Dosage: 500 MG, QD

REACTIONS (2)
  - DEPRESSED LEVEL OF CONSCIOUSNESS [None]
  - HYPOGLYCAEMIA [None]
